FAERS Safety Report 21020299 (Version 2)
Quarter: 2022Q3

REPORT INFORMATION
  Report Type: Spontaneous
  Country: US (occurrence: US)
  Receive Date: 20220628
  Receipt Date: 20220715
  Transmission Date: 20221027
  Serious: No
  Sender: FDA-Public Use
  Company Number: US-JNJFOC-20220619959

PATIENT
  Age: 57 Year
  Sex: Male

DRUGS (1)
  1. TREMFYA [Suspect]
     Active Substance: GUSELKUMAB
     Indication: Psoriasis
     Route: 058
     Dates: start: 202204

REACTIONS (3)
  - Product dose omission issue [Unknown]
  - Complication associated with device [Unknown]
  - Device deployment issue [Unknown]

NARRATIVE: CASE EVENT DATE: 20220606
